FAERS Safety Report 17406948 (Version 1)
Quarter: 2020Q1

REPORT INFORMATION
  Report Type: Spontaneous
  Country: US (occurrence: US)
  Receive Date: 20200211
  Receipt Date: 20200211
  Transmission Date: 20200409
  Serious: Yes (Disabling)
  Sender: FDA-Public Use
  Company Number: None

PATIENT
  Age: 40 Year
  Sex: Female
  Weight: 57.15 kg

DRUGS (1)
  1. CIPROFLOXACIN. [Suspect]
     Active Substance: CIPROFLOXACIN
     Indication: URINARY TRACT INFECTION
     Dosage: ?          QUANTITY:10 TABLET(S);?
     Route: 048
     Dates: start: 20180601, end: 20180602

REACTIONS (16)
  - Insomnia [None]
  - Nephrolithiasis [None]
  - Paraesthesia [None]
  - Fatigue [None]
  - Muscular weakness [None]
  - Tinnitus [None]
  - Diarrhoea [None]
  - Abnormal dreams [None]
  - Myalgia [None]
  - Tremor [None]
  - Feeling abnormal [None]
  - Vision blurred [None]
  - Tendon pain [None]
  - Joint noise [None]
  - Food intolerance [None]
  - Memory impairment [None]

NARRATIVE: CASE EVENT DATE: 20180602
